FAERS Safety Report 14895360 (Version 2)
Quarter: 2024Q2

REPORT INFORMATION
  Report Type: Spontaneous
  Country: ZA (occurrence: ZA)
  Receive Date: 20180515
  Receipt Date: 20240410
  Transmission Date: 20240716
  Serious: Yes (Death, Life-Threatening, Hospitalization, Other)
  Sender: FDA-Public Use
  Company Number: ZA-ACCORD-066899

PATIENT
  Age: 30 Year
  Sex: Female

DRUGS (10)
  1. MYCOPHENOLATE MOFETIL [Suspect]
     Active Substance: MYCOPHENOLATE MOFETIL
     Indication: Chronic allograft nephropathy
     Dosage: 1 G TWICE DAILY, REDUCED TO 500 MG TWICE DAILY
  2. TACROLIMUS [Suspect]
     Active Substance: TACROLIMUS
     Indication: Chronic allograft nephropathy
     Dosage: TARGET SERUM TROUGH LEVEL 5-?7 NG/ML, REDUCED TO A TACROLIMUS TARGET TROUGH LEVEL OF 5 NG/ML
  3. PREDNISONE [Suspect]
     Active Substance: PREDNISONE
     Indication: Chronic allograft nephropathy
     Dosage: 10 MG/DAY, REDUCED TO 5 MG DAILY
  4. METHYLPREDNISOLONE [Suspect]
     Active Substance: METHYLPREDNISOLONE
     Indication: Renal impairment
     Dosage: 250 MG DAILY
     Dates: start: 2015
  5. INSULIN NOS [Concomitant]
     Active Substance: INSULIN NOS
     Indication: Diabetes mellitus
     Dates: start: 2010
  6. GANCICLOVIR [Concomitant]
     Active Substance: GANCICLOVIR
     Indication: Renal impairment
     Route: 042
     Dates: start: 2015
  7. VALGANCICLOVIR HYDROCHLORIDE [Concomitant]
     Active Substance: VALGANCICLOVIR HYDROCHLORIDE
     Indication: Renal impairment
     Route: 048
     Dates: start: 2015
  8. PREDNISONE [Suspect]
     Active Substance: PREDNISONE
     Indication: Chronic allograft nephropathy
  9. METHYLPREDNISOLONE [Suspect]
     Active Substance: METHYLPREDNISOLONE
     Indication: Renal impairment
     Dates: start: 2015
  10. TACROLIMUS [Suspect]
     Active Substance: TACROLIMUS
     Indication: Chronic allograft nephropathy
     Dosage: TARGET TROUGH LEVEL OF 5 NG/ML

REACTIONS (9)
  - Klebsiella infection [Unknown]
  - Bacterial pyelonephritis [Unknown]
  - Sepsis [Fatal]
  - Kaposi^s sarcoma [Unknown]
  - Escherichia infection [Unknown]
  - Systemic inflammatory response syndrome [Unknown]
  - Cytomegalovirus infection [Unknown]
  - BK virus infection [Unknown]
  - Cryptococcosis [Not Recovered/Not Resolved]
